FAERS Safety Report 20836884 (Version 1)
Quarter: 2022Q2

REPORT INFORMATION
  Report Type: Spontaneous
  Country: FR (occurrence: FR)
  Receive Date: 20220517
  Receipt Date: 20220517
  Transmission Date: 20220721
  Serious: Yes (Hospitalization)
  Sender: FDA-Public Use
  Company Number: FR-ADVANZ PHARMA-202205002840

PATIENT

DRUGS (3)
  1. ALFUZOSIN [Suspect]
     Active Substance: ALFUZOSIN
     Indication: Urinary tract disorder
     Dosage: UNK, XATRAL FILM-COATED TABLET
     Route: 065
  2. DESARTAN PLUS [Concomitant]
     Indication: Blood pressure decreased
     Dosage: UNK
     Route: 065
  3. AMITRIPTYLINE HYDROCHLORIDE [Concomitant]
     Active Substance: AMITRIPTYLINE HYDROCHLORIDE
     Indication: Urinary tract disorder
     Dosage: UNK
     Route: 065

REACTIONS (2)
  - Malaise [Unknown]
  - Blood pressure decreased [Unknown]
